FAERS Safety Report 24325215 (Version 1)
Quarter: 2024Q3

REPORT INFORMATION
  Report Type: Spontaneous
  Country: PH (occurrence: None)
  Receive Date: 20240916
  Receipt Date: 20240916
  Transmission Date: 20241017
  Serious: Yes (Death)
  Sender: ASTRAZENECA
  Company Number: 2024A208345

PATIENT
  Sex: Male

DRUGS (1)
  1. IMFINZI [Suspect]
     Active Substance: DURVALUMAB
     Indication: Hepatic cancer
     Dosage: 500.0MG UNKNOWN
     Route: 042
     Dates: start: 202402, end: 202408

REACTIONS (2)
  - Multiple organ dysfunction syndrome [Fatal]
  - Shock [Fatal]
